FAERS Safety Report 21552054 (Version 1)
Quarter: 2022Q4

REPORT INFORMATION
  Report Type: Report from Study
  Country: US (occurrence: US)
  Receive Date: 20221104
  Receipt Date: 20221104
  Transmission Date: 20230113
  Serious: No
  Sender: FDA-Public Use
  Company Number: US-ABBVIE-4138949

PATIENT
  Sex: Female

DRUGS (1)
  1. RINVOQ [Suspect]
     Active Substance: UPADACITINIB
     Indication: Rheumatoid arthritis
     Route: 048

REACTIONS (6)
  - COVID-19 [Recovering/Resolving]
  - Weight increased [Unknown]
  - Weight decreased [Unknown]
  - Plantar fasciitis [Recovered/Resolved]
  - Gait inability [Unknown]
  - Pain in extremity [Unknown]
